FAERS Safety Report 8199246-9 (Version None)
Quarter: 2012Q1

REPORT INFORMATION
  Report Type: 
  Country: None (occurrence: None)
  Receive Date: 20120309
  Receipt Date: 20120227
  Transmission Date: 20120608
  Serious: Yes (Hospitalization, Other)
  Sender: FDA-Public Use
  Company Number: IT-ELI_LILLY_AND_COMPANY-IT201203001866

PATIENT
  Sex: Female
  Weight: 70 kg

DRUGS (3)
  1. DEPAKENE [Concomitant]
     Indication: BIPOLAR DISORDER
     Dosage: 300 MG, BID
  2. ENTUMIN [Concomitant]
     Indication: BIPOLAR DISORDER
     Dosage: 10 DROPS, TID
  3. OLANZAPINE [Suspect]
     Indication: BIPOLAR DISORDER
     Dosage: 300 MG, UNK
     Dates: start: 20120222

REACTIONS (9)
  - COMA [None]
  - FALL [None]
  - FEELING ABNORMAL [None]
  - HYPERSOMNIA [None]
  - FATIGUE [None]
  - RIB FRACTURE [None]
  - DYSPHAGIA [None]
  - SOPOR [None]
  - AMNESIA [None]
